FAERS Safety Report 8592158-8 (Version None)
Quarter: 2012Q3

REPORT INFORMATION
  Report Type: 
  Country: None (occurrence: None)
  Receive Date: 20120814
  Receipt Date: 20120802
  Transmission Date: 20120928
  Serious: Yes (Other)
  Sender: FDA-Public Use
  Company Number: US-ELI_LILLY_AND_COMPANY-US201208001639

PATIENT
  Sex: Female

DRUGS (4)
  1. AMLODIPINE [Concomitant]
  2. CYMBALTA [Suspect]
     Indication: DEPRESSION
     Dosage: 30 MG, UNKNOWN
     Route: 065
     Dates: start: 20020101
  3. FENTANYL [Concomitant]
     Dosage: 100MG, UNK
     Route: 062
  4. SOMA [Concomitant]
     Dosage: UNK, UNK

REACTIONS (9)
  - HAEMORRHAGE SUBCUTANEOUS [None]
  - ABNORMAL DREAMS [None]
  - HYPERTENSION [None]
  - FEAR [None]
  - HEPATITIS C [None]
  - ABDOMINAL PAIN UPPER [None]
  - BACK PAIN [None]
  - PALPITATIONS [None]
  - INTENTIONAL DRUG MISUSE [None]
